FAERS Safety Report 14682329 (Version 1)
Quarter: 2018Q1

REPORT INFORMATION
  Report Type: Spontaneous
  Country: JP (occurrence: JP)
  Receive Date: 20180326
  Receipt Date: 20180326
  Transmission Date: 20180509
  Serious: Yes (Other)
  Sender: FDA-Public Use
  Company Number: JP-ASTRAZENECA-2018SE36739

PATIENT
  Sex: Female

DRUGS (1)
  1. SYMBICORT [Suspect]
     Active Substance: BUDESONIDE\FORMOTEROL FUMARATE DIHYDRATE
     Indication: ASTHMA
     Route: 055

REACTIONS (6)
  - Urinary incontinence [Unknown]
  - Drug dose omission [Unknown]
  - Asthma [Unknown]
  - Chest pain [Unknown]
  - Nasopharyngitis [Unknown]
  - Blindness transient [Unknown]
